FAERS Safety Report 10453252 (Version 9)
Quarter: 2018Q4

REPORT INFORMATION
  Report Type: Report from Study
  Country: US (occurrence: US)
  Receive Date: 20140915
  Receipt Date: 20181102
  Transmission Date: 20190204
  Serious: Yes (Hospitalization, Other)
  Sender: FDA-Public Use
  Company Number: US-SA-2014SA120208

PATIENT
  Age: 54 Year
  Sex: Male
  Weight: 89.99 kg

DRUGS (14)
  1. AMLODIPINE BESILATE [Concomitant]
     Active Substance: AMLODIPINE BESYLATE
     Indication: ESSENTIAL HYPERTENSION
     Dosage: 5 MG,QD
     Route: 048
     Dates: start: 20140925
  2. LOPRESSOR [Concomitant]
     Active Substance: METOPROLOL TARTRATE
     Indication: ESSENTIAL HYPERTENSION
     Dosage: 100 MG,BID
     Route: 048
     Dates: start: 20140924
  3. TERIFLUNOMIDE. [Suspect]
     Active Substance: TERIFLUNOMIDE
     Dosage: 14 MG,UNK
     Route: 048
  4. INTERFERON BETA-1B [Concomitant]
     Active Substance: INTERFERON BETA-1B
     Dosage: UNK
     Dates: start: 20101005
  5. TOPIRAGEN [Concomitant]
     Active Substance: TOPIRAMATE
     Indication: SEIZURE
     Dosage: 6 DF,BID
     Route: 048
     Dates: start: 20140924
  6. TERIFLUNOMIDE. [Suspect]
     Active Substance: TERIFLUNOMIDE
     Indication: MULTIPLE SCLEROSIS
     Dosage: 14 MG,UNK
     Route: 048
     Dates: start: 20140314
  7. SYMBICORT [Concomitant]
     Active Substance: BUDESONIDE\FORMOTEROL FUMARATE DIHYDRATE
     Indication: RESPIRATORY DISORDER
     Dosage: 2 DF,BID
     Route: 055
     Dates: start: 20140924
  8. TAMIFLU [Concomitant]
     Active Substance: OSELTAMIVIR PHOSPHATE
     Dosage: UNK
  9. TERIFLUNOMIDE. [Suspect]
     Active Substance: TERIFLUNOMIDE
     Dosage: 14 MG,UNK
     Route: 048
     Dates: end: 2016
  10. PANTOPRAZOLE SODIUM. [Concomitant]
     Active Substance: PANTOPRAZOLE SODIUM
     Indication: AORTIC DISSECTION
     Dosage: 40 MG,QD
     Route: 048
     Dates: start: 20140925
  11. SYMBICORT [Concomitant]
     Active Substance: BUDESONIDE\FORMOTEROL FUMARATE DIHYDRATE
     Indication: DYSPNOEA
  12. KEPPRA [Concomitant]
     Active Substance: LEVETIRACETAM
     Indication: SEIZURE
     Dosage: 1000 MG,TID
     Route: 048
     Dates: start: 20140924
  13. LIPITOR [Concomitant]
     Active Substance: ATORVASTATIN CALCIUM
     Indication: AORTIC DISSECTION
     Dosage: 20 MG,QD
     Route: 048
     Dates: start: 20150116
  14. TAMSULOSIN HYDROCHLORIDE. [Concomitant]
     Active Substance: TAMSULOSIN HYDROCHLORIDE
     Indication: URINARY INCONTINENCE
     Dosage: .4 MG,BID
     Route: 048
     Dates: start: 20140925

REACTIONS (9)
  - Seizure [Unknown]
  - Dysstasia [Unknown]
  - Gait disturbance [Unknown]
  - Influenza [Unknown]
  - Aortic rupture [Unknown]
  - Asthenia [Not Recovered/Not Resolved]
  - Product dose omission [Unknown]
  - Unevaluable event [Unknown]
  - Confusional state [Unknown]
